FAERS Safety Report 13468651 (Version 1)
Quarter: 2017Q2

REPORT INFORMATION
  Report Type: Spontaneous
  Country: CN (occurrence: CN)
  Receive Date: 20170421
  Receipt Date: 20170421
  Transmission Date: 20170830
  Serious: Yes (Hospitalization)
  Sender: FDA-Public Use
  Company Number: CN-PURDUE PHARMA-GBR-2017-0044829

PATIENT
  Age: 60 Year
  Sex: Female
  Weight: 61 kg

DRUGS (2)
  1. MS CONTIN [Suspect]
     Active Substance: MORPHINE SULFATE
     Indication: ANALGESIC THERAPY
     Dosage: 20 MG, Q12H
     Route: 048
     Dates: start: 20170213, end: 20170215
  2. MS CONTIN [Suspect]
     Active Substance: MORPHINE SULFATE
     Dosage: 10 MG, Q12H
     Route: 048
     Dates: start: 20170209, end: 20170212

REACTIONS (3)
  - Toxicity to various agents [Recovering/Resolving]
  - Dyspnoea [Recovering/Resolving]
  - Palpitations [Recovering/Resolving]

NARRATIVE: CASE EVENT DATE: 20170215
